FAERS Safety Report 13387042 (Version 3)
Quarter: 2017Q2

REPORT INFORMATION
  Report Type: Spontaneous
  Country: DE (occurrence: DE)
  Receive Date: 20170330
  Receipt Date: 20170414
  Transmission Date: 20170830
  Serious: Yes (Life-Threatening, Hospitalization)
  Sender: FDA-Public Use
  Company Number: DE-B.I. PHARMACEUTICALS,INC./RIDGEFIELD-2017-BI-018020

PATIENT
  Age: 86 Year
  Sex: Male

DRUGS (1)
  1. PRADAXA [Suspect]
     Active Substance: DABIGATRAN ETEXILATE MESYLATE
     Indication: PRODUCT USED FOR UNKNOWN INDICATION
     Route: 065
     Dates: start: 201612

REACTIONS (13)
  - Arterial occlusive disease [Unknown]
  - Drug intolerance [Unknown]
  - General physical health deterioration [Unknown]
  - Asthenia [Unknown]
  - C-reactive protein increased [Unknown]
  - Epistaxis [Recovered/Resolved]
  - Anaemia [Unknown]
  - Volume blood decreased [Unknown]
  - Asthenia [Unknown]
  - Skin abrasion [Recovered/Resolved]
  - Dyspnoea [Recovering/Resolving]
  - Abasia [Recovering/Resolving]
  - Fatigue [Unknown]

NARRATIVE: CASE EVENT DATE: 201701
